FAERS Safety Report 5341751-4 (Version None)
Quarter: 2007Q2

REPORT INFORMATION
  Report Type: 
  Country: None (occurrence: None)
  Receive Date: 20070529
  Receipt Date: 20070529
  Transmission Date: 20071010
  Serious: Yes (Hospitalization)
  Sender: FDA-Public Use
  Company Number: None

PATIENT
  Sex: Female
  Weight: 55.4 kg

DRUGS (8)
  1. TEMODAR [Suspect]
     Indication: OLIGODENDROGLIOMA
     Dosage: 150MG/M2 DAYS 1-5 PO
     Route: 048
     Dates: start: 20070329, end: 20070402
  2. SCH66336 [Suspect]
     Indication: OLIGODENDROGLIOMA
     Dosage: 150MG/M2 DAYS 1-5 PO
     Route: 048
     Dates: start: 20070329, end: 20070402
  3. LEXAPRO [Concomitant]
  4. RITALIN LA [Concomitant]
  5. KEPPRA [Concomitant]
  6. ZOFRAN [Concomitant]
  7. MULTI-VITAMIN [Concomitant]
  8. PHENERGAN HCL [Concomitant]

REACTIONS (3)
  - COGNITIVE DISORDER [None]
  - DISEASE PROGRESSION [None]
  - DRUG TOXICITY [None]
